FAERS Safety Report 8793801 (Version 3)
Quarter: 2013Q3

REPORT INFORMATION
  Report Type: Report from Study
  Country: JP (occurrence: JP)
  Receive Date: 20120917
  Receipt Date: 20130814
  Transmission Date: 20140515
  Serious: Yes (Hospitalization)
  Sender: FDA-Public Use
  Company Number: JP-VERTEX PHARMACEUTICAL INC.-AE-2012-007333

PATIENT
  Age: 70 Year
  Sex: Male

DRUGS (9)
  1. VX-950 (TELAPREVIR) [Suspect]
     Indication: CHRONIC HEPATITIS C
     Dosage: 2250 MG, QD
     Route: 048
     Dates: start: 20120229, end: 20120509
  2. REBETOL [Suspect]
     Indication: CHRONIC HEPATITIS C
     Dosage: 400 MG, QD
     Route: 048
     Dates: start: 20120229, end: 20120515
  3. PEGINTRON [Suspect]
     Indication: CHRONIC HEPATITIS C
     Dosage: 1.5 ?G/KG, QW
     Route: 058
     Dates: start: 20120229, end: 20120509
  4. TAKEPRON [Concomitant]
     Dosage: 15 MG, QD
     Route: 048
     Dates: start: 20120514, end: 20120525
  5. CALONAL [Concomitant]
     Dosage: 500 MG/ 5 DAYS
     Route: 048
     Dates: start: 20120514, end: 20120517
  6. MYSLEE [Concomitant]
     Dosage: 1 DF, FOR 5 DOSES AT THE TIME OF INSOMNIA
     Route: 048
     Dates: start: 20120514, end: 20120516
  7. MYSLEE [Concomitant]
     Dosage: 5 MG, QD
     Route: 048
     Dates: start: 20120515, end: 20120515
  8. MAGMITT [Concomitant]
     Dosage: 990 MG, QD
     Route: 048
     Dates: start: 20120522, end: 20120525
  9. GANATON [Concomitant]
     Dosage: 150 MG, QD
     Route: 048
     Dates: start: 20120411, end: 20120515

REACTIONS (2)
  - Rash [Recovered/Resolved]
  - Anaemia [Recovered/Resolved]
